FAERS Safety Report 20617021 (Version 1)
Quarter: 2022Q1

REPORT INFORMATION
  Report Type: Spontaneous
  Country: US (occurrence: None)
  Receive Date: 20220319
  Receipt Date: 20220319
  Transmission Date: 20220423
  Serious: Yes (Other)
  Sender: FDA-Public Use
  Company Number: None

PATIENT
  Age: 45 Year
  Sex: Female
  Weight: 53.1 kg

DRUGS (9)
  1. LUMASON [Suspect]
     Active Substance: SULFUR HEXAFLUORIDE
     Indication: Ultrasound Doppler
     Dates: start: 20220317, end: 20220317
  2. LUMASON [Suspect]
     Active Substance: SULFUR HEXAFLUORIDE
     Indication: Scan with contrast
  3. CORLANOR [Concomitant]
     Active Substance: IVABRADINE HYDROCHLORIDE
  4. TOPAMAX [Concomitant]
     Active Substance: TOPIRAMATE
  5. TRAZODONE [Concomitant]
     Active Substance: TRAZODONE HYDROCHLORIDE
  6. BUPROPION [Concomitant]
     Active Substance: BUPROPION
  7. OCELLA [Concomitant]
     Active Substance: DROSPIRENONE\ETHINYL ESTRADIOL
  8. Sumatriptan prn [Concomitant]
  9. AJOVY [Concomitant]
     Active Substance: FREMANEZUMAB-VFRM

REACTIONS (22)
  - Contrast media reaction [None]
  - Presyncope [None]
  - Flushing [None]
  - Flushing [None]
  - Feeling hot [None]
  - Eye irritation [None]
  - Headache [None]
  - Tinnitus [None]
  - Swelling face [None]
  - Pruritus [None]
  - Pruritus [None]
  - Swelling of eyelid [None]
  - Ocular hyperaemia [None]
  - Eye pain [None]
  - Photophobia [None]
  - Eyelid function disorder [None]
  - Eye irritation [None]
  - Foreign body in eye [None]
  - Glomerular filtration rate decreased [None]
  - Sinus tachycardia [None]
  - Hypotension [None]
  - Anaphylactic reaction [None]

NARRATIVE: CASE EVENT DATE: 20220317
